FAERS Safety Report 25324602 (Version 2)
Quarter: 2025Q2

REPORT INFORMATION
  Report Type: Report from Study
  Country: US (occurrence: US)
  Receive Date: 20250516
  Receipt Date: 20250602
  Transmission Date: 20250716
  Serious: No
  Sender: TEVA
  Company Number: US-TEVA-VS-3329049

PATIENT
  Age: 39 Year
  Sex: Female

DRUGS (2)
  1. UZEDY [Suspect]
     Active Substance: RISPERIDONE
     Indication: Bipolar I disorder
     Dosage: STRENGTH: 125/0.35MG/ML
     Route: 065
     Dates: start: 20250425
  2. UZEDY [Suspect]
     Active Substance: RISPERIDONE
     Indication: Sleep disorder

REACTIONS (5)
  - Anxiety [Unknown]
  - Off label use [Unknown]
  - Constipation [Unknown]
  - Product prescribing error [Unknown]
  - Product use in unapproved indication [Unknown]

NARRATIVE: CASE EVENT DATE: 20250101
